FAERS Safety Report 8244171-8 (Version None)
Quarter: 2012Q1

REPORT INFORMATION
  Report Type: 
  Country: None (occurrence: None)
  Receive Date: 20120329
  Receipt Date: 20120327
  Transmission Date: 20120608
  Serious: No
  Sender: FDA-Public Use
  Company Number: US-B.I. PHARMACEUTICALS,INC./RIDGEFIELD-2012-BP-05825BP

PATIENT
  Sex: Female

DRUGS (1)
  1. TRADJENTA [Suspect]
     Indication: TYPE 2 DIABETES MELLITUS
     Dosage: 5 MG
     Route: 048
     Dates: start: 20120223, end: 20120226

REACTIONS (5)
  - WEIGHT DECREASED [None]
  - NAUSEA [None]
  - HYPERGLYCAEMIA [None]
  - ABDOMINAL PAIN [None]
  - BACK PAIN [None]
